FAERS Safety Report 13004583 (Version 1)
Quarter: 2016Q4

REPORT INFORMATION
  Report Type: Spontaneous
  Country: FR (occurrence: FR)
  Receive Date: 20161207
  Receipt Date: 20161207
  Transmission Date: 20170207
  Serious: Yes (Hospitalization)
  Sender: FDA-Public Use
  Company Number: FR-ASTRAZENECA-2016SF28347

PATIENT
  Age: 799 Month
  Sex: Male

DRUGS (12)
  1. PARACETAMOL [Concomitant]
     Active Substance: ACETAMINOPHEN
     Route: 048
  2. STELARA [Suspect]
     Active Substance: USTEKINUMAB
     Dosage: 1 DF ONCE EVERY 12 WEEKS
     Route: 058
     Dates: start: 20160216
  3. METFORMINE [Concomitant]
     Active Substance: METFORMIN HYDROCHLORIDE
     Route: 048
  4. ENBREL [Suspect]
     Active Substance: ETANERCEPT
     Route: 065
     Dates: start: 201305, end: 20160216
  5. INSULIN [Concomitant]
     Active Substance: INSULIN NOS
     Dosage: INSULIN PUMP ONE A DAY
     Route: 058
  6. MOPRAL [Concomitant]
     Active Substance: OMEPRAZOLE SODIUM
     Route: 048
  7. ATACAND [Suspect]
     Active Substance: CANDESARTAN CILEXETIL
     Route: 048
  8. COSOPT [Concomitant]
     Active Substance: DORZOLAMIDE HYDROCHLORIDE\TIMOLOL MALEATE
     Dosage: ONE DROP A DAY IN THE RIGHT EYE
     Route: 047
  9. LASILIX [Suspect]
     Active Substance: FUROSEMIDE
     Dosage: 250MG/25ML 1DF A DAY
     Route: 048
  10. DUOTRAV [Concomitant]
     Active Substance: TIMOLOL MALEATE\TRAVOPROST
     Dosage: ONE DROP A DAY IN THE RIGHT EYE
     Route: 048
  11. DAIVOBET [Concomitant]
     Active Substance: BETAMETHASONE DIPROPIONATE\CALCIPOTRIENE
     Dosage: 1 APPLICATION A DAY
  12. AERIUS [Concomitant]
     Active Substance: DESLORATADINE
     Route: 048

REACTIONS (1)
  - Blood creatinine abnormal [Recovered/Resolved]

NARRATIVE: CASE EVENT DATE: 20160325
